FAERS Safety Report 5629760-9 (Version None)
Quarter: 2008Q1

REPORT INFORMATION
  Report Type: 
  Country: None (occurrence: None)
  Receive Date: 20080218
  Receipt Date: 20080211
  Transmission Date: 20080703
  Serious: Yes (Hospitalization, Disabling, Other)
  Sender: FDA-Public Use
  Company Number: US-MERCK-0711USA03957

PATIENT
  Age: 47 Year
  Sex: Female
  Weight: 101 kg

DRUGS (18)
  1. JANUVIA [Suspect]
     Indication: TYPE 2 DIABETES MELLITUS
     Route: 048
     Dates: start: 20070521, end: 20071001
  2. BYETTA [Suspect]
     Route: 065
     Dates: start: 20070101
  3. GLUCOPHAGE [Concomitant]
     Route: 048
  4. TRICOR [Concomitant]
     Route: 048
  5. TORSEMIDE [Concomitant]
     Route: 048
  6. CRESTOR [Concomitant]
     Route: 048
  7. DIOVAN [Concomitant]
     Route: 048
  8. PAXIL [Concomitant]
     Route: 048
  9. LANTUS [Concomitant]
     Route: 065
  10. ASPIRIN [Concomitant]
     Route: 065
  11. CENTRUM SILVER [Concomitant]
     Route: 065
  12. THIOCTIC ACID [Concomitant]
     Route: 065
  13. Q-SORB COENZYME Q-10 [Concomitant]
     Route: 065
  14. OMEGA-3 [Concomitant]
     Route: 065
  15. SYNTHROID [Concomitant]
     Route: 065
  16. LYRICA [Concomitant]
     Route: 048
  17. NOVOLOG [Concomitant]
     Route: 065
  18. SYMLIN [Concomitant]
     Route: 065

REACTIONS (4)
  - APHTHOUS STOMATITIS [None]
  - DIARRHOEA [None]
  - PANCREATITIS [None]
  - URTICARIA [None]
